FAERS Safety Report 8502311-7 (Version None)
Quarter: 2012Q3

REPORT INFORMATION
  Report Type: 
  Country: None (occurrence: None)
  Receive Date: 20120711
  Receipt Date: 20120105
  Transmission Date: 20120928
  Serious: No
  Sender: FDA-Public Use
  Company Number: US-COVIDIEN/TYCO HEALTHCARE/MALLINCKRODT-T201200276

PATIENT
  Sex: Male
  Weight: 108.84 kg

DRUGS (13)
  1. OXYCODONE HCL [Suspect]
     Indication: PAIN
     Dosage: 15 MG, TID
     Route: 048
     Dates: start: 20070101
  2. KLONOPIN [Concomitant]
     Indication: INSOMNIA
     Dosage: UNK
  3. SYNTHROID [Concomitant]
     Dosage: UNK
  4. TESTOSTERONE [Concomitant]
     Indication: PAIN
     Dosage: INJECTION, EVERY 2 WEEKS
  5. FENTANYL [Concomitant]
     Indication: PAIN
     Dosage: 100 UG/HR, EVERY 48 HRS
     Route: 062
  6. CITALOPRAM HYDROBROMIDE [Concomitant]
     Dosage: UNK
  7. GABAPENTIN [Concomitant]
     Indication: PAIN
     Dosage: 600 MG, QID
  8. WELLBUTRIN [Concomitant]
     Dosage: 300 UNK, QD
  9. MIRTAZAPINE [Concomitant]
     Indication: INSOMNIA
     Dosage: UNK
  10. METHADONE HCL [Suspect]
     Indication: PAIN
     Dosage: 10 MG, 4-5 TABLETS PER DAY
     Route: 048
     Dates: start: 20070101
  11. PROVIGIL [Concomitant]
     Dosage: UNK
  12. PANTOPRAZOLE [Concomitant]
     Dosage: UNK
  13. ZYPREXA [Concomitant]
     Indication: INSOMNIA
     Dosage: UNK, PRN

REACTIONS (3)
  - WITHDRAWAL SYNDROME [None]
  - HEADACHE [None]
  - DISORIENTATION [None]
